FAERS Safety Report 8834469 (Version 1)
Quarter: 2012Q4

REPORT INFORMATION
  Report Type: 
  Country: ES (occurrence: ES)
  Receive Date: 20121010
  Receipt Date: 20121010
  Transmission Date: 20130627
  Serious: Yes (Life-Threatening, Hospitalization)
  Sender: FDA-Public Use
  Company Number: ES-BAYER-2012-105054

PATIENT
  Age: 78 Year
  Sex: Male

DRUGS (5)
  1. ADIRO 100 [Suspect]
     Indication: CARDIOVASCULAR EVENT PROPHYLAXIS
     Dosage: 100 mg, Q1HR
     Route: 048
     Dates: start: 20120125, end: 20120229
  2. SERTRALIN [Interacting]
     Indication: DEPRESSION
     Dosage: 25 mg, QD
     Route: 048
     Dates: start: 20090629, end: 20120229
  3. PANTOPRAZOLE [Concomitant]
     Indication: PROPHYLAXIS AGAINST GASTROINTESTINAL ULCER
     Dosage: 40 mg, QD
     Route: 048
     Dates: start: 20101203
  4. CARDYL [Concomitant]
     Indication: DYSLIPIDAEMIA
     Dosage: 20 mg, QD
     Route: 048
     Dates: start: 20101203
  5. EZETROL [Concomitant]
     Indication: DYSLIPIDAEMIA
     Dosage: 10 mg, QD
     Route: 048
     Dates: start: 20090629

REACTIONS (3)
  - Duodenal ulcer haemorrhage [Recovered/Resolved]
  - Hypovolaemic shock [Recovered/Resolved]
  - Acute myocardial infarction [Recovered/Resolved]
